FAERS Safety Report 19967073 (Version 4)
Quarter: 2021Q4

REPORT INFORMATION
  Report Type: Spontaneous
  Country: JP (occurrence: JP)
  Receive Date: 20211019
  Receipt Date: 20211217
  Transmission Date: 20220303
  Serious: Yes (Life-Threatening, Hospitalization, Disabling, Other)
  Sender: FDA-Public Use
  Company Number: JP-AMGEN-JPNSP2021158262

PATIENT
  Age: 78 Year
  Sex: Male
  Weight: 44 kg

DRUGS (10)
  1. EVENITY [Suspect]
     Active Substance: ROMOSOZUMAB-AQQG
     Indication: Osteoporosis
     Dosage: 210 MILLIGRAM
     Route: 058
     Dates: start: 20210720, end: 20210830
  2. AMLODIPINE BESYLATE [Concomitant]
     Active Substance: AMLODIPINE BESYLATE
     Indication: Hypertension
     Dosage: 5 MILLIGRAM, QD
     Dates: start: 20210930
  3. ZOLPIDEM TARTRATE [Concomitant]
     Active Substance: ZOLPIDEM TARTRATE
     Indication: Insomnia
     Dosage: 10 MILLIGRAM, QD
     Dates: start: 20210930
  4. CARBOCYSTEINE [Concomitant]
     Active Substance: CARBOCYSTEINE
     Indication: Cough
     Dosage: UNK (500 MG DIVIDED INTO THREE DOSES A DAY)
     Dates: start: 20210930
  5. SHAKUYAKUKANZOTO [Concomitant]
     Active Substance: HERBALS
     Indication: Pain in extremity
     Dosage: 2.5 GRAM (AS NEEDED)
     Dates: start: 20210930
  6. SULFASALAZINE [Concomitant]
     Active Substance: SULFASALAZINE
     Indication: Rheumatic disorder
     Dosage: 250 MILLIGRAM, BID
     Dates: start: 20210930
  7. PREDNISOLONE [Concomitant]
     Active Substance: PREDNISOLONE
     Indication: Rheumatic disorder
     Dosage: 1 MILLIGRAM, QD
     Dates: start: 20210930
  8. PREDONINE [Concomitant]
     Active Substance: PREDNISOLONE
     Indication: Rheumatic disorder
     Dosage: 5 MILLIGRAM, QD
     Dates: start: 20210930
  9. VONOPRAZAN FUMARATE [Concomitant]
     Active Substance: VONOPRAZAN FUMARATE
     Indication: Gastritis
     Dosage: 20 MILLIGRAM, QD
     Dates: start: 20210930
  10. TACROLIMUS [Concomitant]
     Active Substance: TACROLIMUS
     Indication: Rheumatic disorder
     Dosage: 1 MILLIGRAM, QD
     Dates: start: 20210930

REACTIONS (2)
  - Myocardial infarction [Recovered/Resolved with Sequelae]
  - Postresuscitation encephalopathy [Recovered/Resolved with Sequelae]

NARRATIVE: CASE EVENT DATE: 20210930
